FAERS Safety Report 15543877 (Version 1)
Quarter: 2018Q4

REPORT INFORMATION
  Report Type: Spontaneous
  Country: US (occurrence: US)
  Receive Date: 20181023
  Receipt Date: 20181023
  Transmission Date: 20190205
  Serious: Yes (Other)
  Sender: FDA-Public Use
  Company Number: US-TARO-2017TAR00975

PATIENT
  Age: 26 Year
  Sex: Female

DRUGS (4)
  1. CARBAMAZEPINE. [Suspect]
     Active Substance: CARBAMAZEPINE
     Indication: GENERALISED TONIC-CLONIC SEIZURE
  2. KEPPRA [Suspect]
     Active Substance: LEVETIRACETAM
     Indication: GENERALISED TONIC-CLONIC SEIZURE
  3. CARBAMAZEPINE. [Suspect]
     Active Substance: CARBAMAZEPINE
     Indication: EPILEPSY
     Dosage: UNK
  4. KEPPRA [Suspect]
     Active Substance: LEVETIRACETAM
     Indication: EPILEPSY
     Dosage: UNK

REACTIONS (3)
  - Drug effect incomplete [Not Recovered/Not Resolved]
  - Aphasia [Not Recovered/Not Resolved]
  - Confusional state [Not Recovered/Not Resolved]
